FAERS Safety Report 4589964-3 (Version None)
Quarter: 2005Q1

REPORT INFORMATION
  Report Type: 
  Country: None (occurrence: None)
  Receive Date: 20050125
  Receipt Date: 20040830
  Transmission Date: 20050727
  Serious: No
  Sender: FDA-Public Use
  Company Number: USA040772161

PATIENT
  Age: 81 Year
  Sex: Female
  Weight: 77 kg

DRUGS (9)
  1. FORTEO [Suspect]
     Indication: OSTEOPOROSIS
     Dosage: 20 UG/1 DAY
     Dates: start: 20040618
  2. CITRATE (CITRATE) [Concomitant]
  3. MILK OF MAGNESIA [Concomitant]
  4. CITRUCEL (METHYLCELLULOSE) [Concomitant]
  5. COZAAR [Concomitant]
  6. TENORMIN (ATENOLOL EG) [Concomitant]
  7. PREVACID [Concomitant]
  8. TYLENOL [Concomitant]
  9. ANUSOL-HC (HYDROCORTISONE ACETATE) [Concomitant]

REACTIONS (16)
  - ABDOMINAL DISTENSION [None]
  - ABNORMAL FAECES [None]
  - BREAST PAIN [None]
  - BURNING SENSATION [None]
  - CONSTIPATION [None]
  - CONTUSION [None]
  - EUSTACHIAN TUBE DISORDER [None]
  - FAECALOMA [None]
  - HAEMORRHOIDS [None]
  - INCREASED TENDENCY TO BRUISE [None]
  - INJECTION SITE DISCOLOURATION [None]
  - INJECTION SITE HAEMORRHAGE [None]
  - MAMMOGRAM [None]
  - MULTIPLE ALLERGIES [None]
  - PAIN IN EXTREMITY [None]
  - PARAESTHESIA [None]
